FAERS Safety Report 7773048-7 (Version None)
Quarter: 2011Q3

REPORT INFORMATION
  Report Type: 
  Country: None (occurrence: None)
  Receive Date: 20110922
  Receipt Date: 20101103
  Transmission Date: 20111222
  Serious: No
  Sender: FDA-Public Use
  Company Number: US-ASTRAZENECA-2010SE52624

PATIENT
  Sex: Female

DRUGS (19)
  1. HYDROCODONE BITARTRATE AND ACETAMINOPHEN [Concomitant]
     Dosage: 5-325
     Dates: start: 20100202
  2. LITHIUM CARBONATE [Concomitant]
     Dates: start: 20100520
  3. SEROQUEL [Suspect]
     Route: 048
     Dates: start: 20100310
  4. SEROQUEL [Suspect]
     Route: 048
     Dates: start: 20100629
  5. SEROQUEL [Suspect]
     Route: 048
     Dates: start: 20101025
  6. OXYCODONE HCL AND ACETAMINOPHEN [Concomitant]
     Dosage: 5-325
     Dates: start: 20100707
  7. PROMETHAZINE [Concomitant]
     Dates: start: 20100823
  8. DIPHENHYDRAMINE HCL [Concomitant]
     Dates: start: 20101005
  9. SUBOXONE [Concomitant]
     Dosage: 8 MG-2 MG
     Dates: start: 20100205
  10. SULFAMETHOXAZOLE AND TRIMETHOPRIM DOUBLE STRENGTH [Concomitant]
     Dates: start: 20100909
  11. CIPROFLOXACIN HCL [Concomitant]
     Dates: start: 20100202
  12. OXYCODONE HCL [Concomitant]
     Dates: start: 20100810
  13. ALPRAZOLAM [Concomitant]
     Dates: start: 20100304
  14. LITHIUM CARBONATE [Concomitant]
     Dates: start: 20100304
  15. ALPRAZOLAM [Concomitant]
     Dates: start: 20100310
  16. BUTAL-APAP-325-CAFF [Concomitant]
     Dates: start: 20100804
  17. LORATADINE [Concomitant]
     Dates: start: 20100804
  18. CVS NTS [Concomitant]
     Dates: start: 20101025
  19. DIPHENHYDRAMINE HCL [Concomitant]
     Dates: start: 20100909

REACTIONS (1)
  - DRUG TOLERANCE INCREASED [None]
